FAERS Safety Report 4896508-5 (Version None)
Quarter: 2006Q1

REPORT INFORMATION
  Report Type: 
  Country: None (occurrence: None)
  Receive Date: 20060131
  Receipt Date: 20060127
  Transmission Date: 20060701
  Serious: Yes (Hospitalization)
  Sender: FDA-Public Use
  Company Number: US-GLAXOSMITHKLINE-A0591284A

PATIENT
  Age: 63 Year
  Sex: Female

DRUGS (12)
  1. ADVAIR DISKUS 100/50 [Suspect]
     Indication: ASTHMA
     Dosage: 1PUFF TWICE PER DAY
     Route: 055
  2. DILANTIN [Concomitant]
  3. ALLEGRA [Concomitant]
  4. PROTONIX [Concomitant]
  5. FUROSEMIDE [Concomitant]
  6. ATENOLOL [Concomitant]
  7. LIPITOR [Concomitant]
  8. FOLIC ACID [Concomitant]
  9. PHENOBARB [Concomitant]
  10. SYNTHROID [Concomitant]
  11. ALBUTEROL SULFATE AUTOHALER [Concomitant]
  12. POTASSIUM CHLORIDE [Concomitant]

REACTIONS (3)
  - ABDOMINAL MASS [None]
  - HAEMORRHAGE [None]
  - ULCER [None]
